FAERS Safety Report 4625732-1 (Version None)
Quarter: 2005Q1

REPORT INFORMATION
  Report Type: 
  Country: None (occurrence: None)
  Receive Date: 20050330
  Receipt Date: 20050317
  Transmission Date: 20050727
  Serious: Yes (Hospitalization, Other)
  Sender: FDA-Public Use
  Company Number: JP-2005-003205

PATIENT
  Age: 64 Year
  Sex: Male

DRUGS (1)
  1. PROSCOPE 300 (IOPROMIDE) [Suspect]
     Indication: COMPUTERISED TOMOGRAM ABDOMEN
     Dosage: 100 ML, 1 DOSE, IV BOLUS
     Route: 040
     Dates: start: 20050225, end: 20050225

REACTIONS (6)
  - BLOOD PRESSURE SYSTOLIC DECREASED [None]
  - COLD SWEAT [None]
  - DEPRESSED LEVEL OF CONSCIOUSNESS [None]
  - EYE DISORDER [None]
  - SHOCK [None]
  - SNEEZING [None]
